FAERS Safety Report 17642122 (Version 1)
Quarter: 2020Q2

REPORT INFORMATION
  Report Type: Spontaneous
  Country: US (occurrence: US)
  Receive Date: 20200408
  Receipt Date: 20200408
  Transmission Date: 20200713
  Serious: Yes (Hospitalization, Disabling)
  Sender: FDA-Public Use
  Company Number: US-JNJFOC-20200341493

PATIENT
  Age: 51 Year
  Sex: Female

DRUGS (2)
  1. INVOKANA [Suspect]
     Active Substance: CANAGLIFLOZIN
     Indication: TYPE 2 DIABETES MELLITUS
     Route: 048
  2. INVOKAMET [Suspect]
     Active Substance: CANAGLIFLOZIN\METFORMIN HYDROCHLORIDE
     Indication: PRODUCT USED FOR UNKNOWN INDICATION
     Route: 048

REACTIONS (6)
  - Necrotising fasciitis [Unknown]
  - Diabetic foot infection [Unknown]
  - Gas gangrene [Unknown]
  - Sepsis [Unknown]
  - Osteomyelitis [Unknown]
  - Limb amputation [Unknown]

NARRATIVE: CASE EVENT DATE: 20131217
